FAERS Safety Report 9949317 (Version 1)
Quarter: 2014Q1

REPORT INFORMATION
  Report Type: Spontaneous
  Country: US (occurrence: US)
  Receive Date: 20140304
  Receipt Date: 20140304
  Transmission Date: 20141002
  Serious: No
  Sender: FDA-Public Use
  Company Number: US-PFIZER INC-2014060280

PATIENT
  Sex: Female

DRUGS (1)
  1. CELEBREX [Suspect]
     Indication: CONTUSION
     Dosage: 200 MG, 1X/DAY
     Dates: start: 201402

REACTIONS (2)
  - Off label use [Unknown]
  - Increased tendency to bruise [Unknown]
